FAERS Safety Report 16918337 (Version 1)
Quarter: 2019Q4

REPORT INFORMATION
  Report Type: Spontaneous
  Country: FR (occurrence: FR)
  Receive Date: 20191015
  Receipt Date: 20191015
  Transmission Date: 20200122
  Serious: Yes (Other)
  Sender: FDA-Public Use
  Company Number: FR-PFIZER INC-2019444656

PATIENT
  Age: 47 Year
  Sex: Female
  Weight: 58 kg

DRUGS (11)
  1. CISATRACURIUM. [Concomitant]
     Active Substance: CISATRACURIUM
     Dosage: UNK
     Dates: start: 20190408, end: 20190418
  2. OMNIPAQUE [Suspect]
     Active Substance: IOHEXOL
     Indication: COMPUTERISED TOMOGRAM
     Dosage: 1 DF, TOTAL
     Route: 042
     Dates: start: 20190407, end: 20190407
  3. PARACETAMOL [Concomitant]
     Active Substance: ACETAMINOPHEN
     Dosage: UNK
     Route: 042
     Dates: start: 20190409, end: 20190501
  4. HYDROCORTISONE. [Concomitant]
     Active Substance: HYDROCORTISONE
     Dosage: UNK
     Route: 042
     Dates: start: 20190410, end: 20190418
  5. MIDAZOLAM [Concomitant]
     Active Substance: MIDAZOLAM HYDROCHLORIDE
     Dosage: 50 MG/10MG/DAY
     Route: 042
     Dates: start: 20190408, end: 20190418
  6. PANTOPRAZOLE [Concomitant]
     Active Substance: PANTOPRAZOLE
     Dosage: 40 MG,QD
     Route: 042
     Dates: start: 20190408, end: 20190422
  7. HEPARINE SODIQUE [Concomitant]
     Active Substance: HEPARIN SODIUM
     Dosage: 25000 IU,QD
     Route: 058
     Dates: start: 20190408, end: 20190422
  8. AMIODARONE HCL [Suspect]
     Active Substance: AMIODARONE HYDROCHLORIDE
     Dosage: UNK
     Route: 048
     Dates: start: 20190408, end: 20190410
  9. AMOXICILLIN. [Suspect]
     Active Substance: AMOXICILLIN
     Indication: SEPTIC SHOCK
     Dosage: UNK
     Route: 042
     Dates: start: 20190410, end: 20190411
  10. NORADRENALINE [NOREPINEPHRINE] [Concomitant]
     Active Substance: NOREPINEPHRINE
     Dosage: UNK
     Route: 042
     Dates: start: 20190408, end: 20190420
  11. SPIRAMYCIN [Suspect]
     Active Substance: SPIRAMYCIN
     Indication: SEPTIC SHOCK
     Dosage: UNK
     Route: 042
     Dates: start: 20190407, end: 20190410

REACTIONS (2)
  - Dermatitis exfoliative generalised [Recovered/Resolved]
  - Skin exfoliation [Recovered/Resolved]

NARRATIVE: CASE EVENT DATE: 20190411
